FAERS Safety Report 21139180 (Version 1)
Quarter: 2022Q3

REPORT INFORMATION
  Report Type: Spontaneous
  Country: US (occurrence: None)
  Receive Date: 20220727
  Receipt Date: 20220727
  Transmission Date: 20221027
  Serious: Yes (Disabling, Other)
  Sender: FDA-Public Use
  Company Number: None

PATIENT
  Age: 67 Year
  Sex: Male
  Weight: 92.08 kg

DRUGS (2)
  1. CLOPIDOGREL [Suspect]
     Active Substance: CLOPIDOGREL BISULFATE
     Indication: Thrombosis prophylaxis
     Dosage: FREQUENCY : DAILY;?
     Route: 048
     Dates: start: 20210325
  2. ATORVASTATIN [Suspect]
     Active Substance: ATORVASTATIN

REACTIONS (3)
  - Fall [None]
  - Nervousness [None]
  - Ligament sprain [None]
